FAERS Safety Report 7460131-9 (Version None)
Quarter: 2011Q2

REPORT INFORMATION
  Report Type: 
  Country: None (occurrence: None)
  Receive Date: 20110505
  Receipt Date: 20110425
  Transmission Date: 20111010
  Serious: Yes (Hospitalization, Other)
  Sender: FDA-Public Use
  Company Number: US-ELI_LILLY_AND_COMPANY-US200906005613

PATIENT
  Sex: Female
  Weight: 86 kg

DRUGS (25)
  1. ZETIA [Concomitant]
     Indication: BLOOD CHOLESTEROL INCREASED
  2. PRILOSEC [Concomitant]
     Indication: GASTROOESOPHAGEAL REFLUX DISEASE
     Dosage: UNK
  3. PLAVIX [Concomitant]
  4. HYDROCODONE BITARTRATE [Concomitant]
     Indication: PAIN
  5. PRIMAXIN [Concomitant]
     Dosage: UNK
  6. KLOR-CON [Concomitant]
  7. BYETTA [Suspect]
     Dosage: 10 UG, UNK
  8. LIPITOR [Concomitant]
     Indication: BLOOD CHOLESTEROL
     Dosage: UNK
  9. CARBAMAZEPINE [Concomitant]
     Indication: BIPOLAR DISORDER
  10. LANTUS [Concomitant]
     Indication: BLOOD INSULIN
  11. BENAZEPRIL HYDROCHLORIDE [Concomitant]
     Indication: HYPERTENSION
  12. LYRICA [Concomitant]
     Indication: NEURALGIA
  13. GLIPIZIDE [Concomitant]
  14. METOLAZONE [Concomitant]
  15. FUROSEMIDE [Concomitant]
     Indication: CARDIAC DISORDER
  16. NITROGLYCERIN [Concomitant]
     Indication: PROPHYLAXIS
  17. METOCLOPRAMIDE [Concomitant]
     Indication: GASTROOESOPHAGEAL REFLUX DISEASE
  18. GABAPENTIN [Concomitant]
  19. LEVOXYL [Concomitant]
     Indication: HYPOTHYROIDISM
     Dosage: UNK
  20. ALLEGRA [Concomitant]
     Indication: HYPERSENSITIVITY
     Dosage: UNK
  21. NOVOLOG [Concomitant]
     Indication: BLOOD INSULIN
  22. COREG [Concomitant]
     Indication: HYPERTENSION
  23. LOTENSIN [Concomitant]
     Indication: HYPERTENSION
  24. NORTRIPTYLINE [Concomitant]
  25. NAPROXEN [Concomitant]

REACTIONS (5)
  - PANCREATITIS RELAPSING [None]
  - PANCREATITIS ACUTE [None]
  - OFF LABEL USE [None]
  - LIVER INJURY [None]
  - RENAL INJURY [None]
